FAERS Safety Report 4499767-6 (Version None)
Quarter: 2004Q4

REPORT INFORMATION
  Report Type: 
  Country: None (occurrence: None)
  Receive Date: 20041108
  Receipt Date: 20041101
  Transmission Date: 20050328
  Serious: Yes (Other)
  Sender: FDA-Public Use
  Company Number: B0350111A

PATIENT
  Sex: Female

DRUGS (2)
  1. NICODERM CQ [Suspect]
     Indication: EX-SMOKER
     Dosage: 21 MG/PER DAY/ TRANSDERMAL
     Route: 062
     Dates: start: 20040301, end: 20040101
  2. NICODERM CQ [Suspect]
     Indication: EX-SMOKER
     Dosage: INHALED
     Route: 055

REACTIONS (3)
  - CONVULSION [None]
  - OEDEMA [None]
  - WEIGHT INCREASED [None]
